FAERS Safety Report 6089255-8 (Version None)
Quarter: 2009Q1

REPORT INFORMATION
  Report Type: 
  Country: None (occurrence: None)
  Receive Date: 20090224
  Receipt Date: 20090218
  Transmission Date: 20090719
  Serious: Yes (Hospitalization)
  Sender: FDA-Public Use
  Company Number: ID-MERCK-0902USA03486

PATIENT
  Age: 41 Year
  Sex: Male
  Weight: 53 kg

DRUGS (2)
  1. DECADRON [Suspect]
     Indication: MULTIPLE MYELOMA
     Route: 048
     Dates: start: 20050101, end: 20050801
  2. CYCLOPHOSPHAMIDE [Concomitant]
     Indication: MULTIPLE MYELOMA
     Route: 065
     Dates: start: 20050101, end: 20050801

REACTIONS (1)
  - HEPATIC STEATOSIS [None]
